FAERS Safety Report 12121612 (Version 1)
Quarter: 2016Q1

REPORT INFORMATION
  Report Type: Spontaneous
  Country: US (occurrence: US)
  Receive Date: 20160226
  Receipt Date: 20160226
  Transmission Date: 20160526
  Serious: Yes (Hospitalization)
  Sender: FDA-Public Use
  Company Number: US-ELI_LILLY_AND_COMPANY-US201602006170

PATIENT
  Age: 45 Year
  Sex: Female

DRUGS (8)
  1. HUMULIN R [Suspect]
     Active Substance: INSULIN HUMAN
     Indication: TYPE 2 DIABETES MELLITUS
     Dosage: 101 U, QD
     Route: 065
     Dates: start: 201502
  2. VICTOZA [Concomitant]
     Active Substance: LIRAGLUTIDE
     Indication: PRODUCT USED FOR UNKNOWN INDICATION
     Route: 065
  3. METFORMIN [Concomitant]
     Active Substance: METFORMIN HYDROCHLORIDE
     Indication: PRODUCT USED FOR UNKNOWN INDICATION
     Route: 065
  4. HUMULIN R [Suspect]
     Active Substance: INSULIN HUMAN
     Dosage: UNK, OTHER
     Route: 065
     Dates: start: 201502
  5. HUMULIN R [Suspect]
     Active Substance: INSULIN HUMAN
     Dosage: UNK, OTHER
     Route: 065
  6. INVOKANA [Concomitant]
     Active Substance: CANAGLIFLOZIN
     Indication: PRODUCT USED FOR UNKNOWN INDICATION
     Route: 065
  7. JANUVIA [Concomitant]
     Active Substance: SITAGLIPTIN PHOSPHATE
     Indication: PRODUCT USED FOR UNKNOWN INDICATION
     Route: 065
  8. HUMULIN R [Suspect]
     Active Substance: INSULIN HUMAN
     Dosage: 101 U, QD
     Route: 065

REACTIONS (3)
  - Blood glucose increased [Unknown]
  - Drug dose omission [Unknown]
  - Glycosylated haemoglobin increased [Unknown]

NARRATIVE: CASE EVENT DATE: 20160216
